FAERS Safety Report 5840382-7 (Version None)
Quarter: 2008Q3

REPORT INFORMATION
  Report Type: 
  Country: None (occurrence: None)
  Receive Date: 20080807
  Receipt Date: 20080728
  Transmission Date: 20090109
  Serious: Yes (Hospitalization, Other)
  Sender: FDA-Public Use
  Company Number: 15283

PATIENT
  Age: 42 Year
  Sex: Male
  Weight: 81.6475 kg

DRUGS (3)
  1. MORPHINE SULFATE [Suspect]
     Indication: BACK PAIN
     Dosage: 30 MG EVERY 4-6HRS ORAL
     Route: 048
     Dates: start: 20080301, end: 20080701
  2. OXYCODONE PRN [Concomitant]
  3. PROTONIX QD [Concomitant]

REACTIONS (5)
  - ABDOMINAL PAIN UPPER [None]
  - DIZZINESS [None]
  - NAUSEA [None]
  - PHARMACEUTICAL PRODUCT COMPLAINT [None]
  - VOMITING [None]
